FAERS Safety Report 8918372 (Version 1)
Quarter: 2012Q4

REPORT INFORMATION
  Report Type: 
  Country: US (occurrence: US)
  Receive Date: 20121120
  Receipt Date: 20121120
  Transmission Date: 20130627
  Serious: Yes (Other)
  Sender: FDA-Public Use
  Company Number: US-PFIZER INC-2012285748

PATIENT
  Age: 82 Year
  Sex: Female
  Weight: 49.89 kg

DRUGS (2)
  1. XALATAN [Suspect]
     Indication: OPEN ANGLE GLAUCOMA
     Dosage: UNK, 1x/day
     Route: 047
  2. OCUVITE [Concomitant]
     Dosage: UNK

REACTIONS (2)
  - Myocardial infarction [Unknown]
  - Inappropriate schedule of drug administration [Unknown]
